FAERS Safety Report 4656154-5 (Version None)
Quarter: 2005Q2

REPORT INFORMATION
  Report Type: 
  Country: None (occurrence: None)
  Receive Date: 20050505
  Receipt Date: 20050418
  Transmission Date: 20051028
  Serious: Yes (Life-Threatening)
  Sender: FDA-Public Use
  Company Number: GBS050417179

PATIENT
  Age: 67 Year
  Sex: Female

DRUGS (4)
  1. XIGRIS [Suspect]
     Dosage: 24 UG/KG/HR
     Dates: start: 20050412, end: 20050414
  2. ANTIBIOTICS [Concomitant]
  3. RANITIDINE [Concomitant]
  4. EPOPROSTENOL [Concomitant]

REACTIONS (1)
  - THROMBOCYTOPENIA [None]
